FAERS Safety Report 4287521-X (Version None)
Quarter: 2004Q1

REPORT INFORMATION
  Report Type: 
  Country: None (occurrence: None)
  Receive Date: 20040209
  Receipt Date: 20030715
  Transmission Date: 20041129
  Serious: Yes (Other)
  Sender: FDA-Public Use
  Company Number: US-GLAXOSMITHKLINE-A0416850A

PATIENT
  Age: 41 Year
  Sex: Male

DRUGS (4)
  1. PAXIL CR [Suspect]
     Indication: DEPRESSION
     Route: 048
  2. PROZAC [Concomitant]
  3. TEGRETOL [Concomitant]
  4. ZYPREXA [Concomitant]

REACTIONS (1)
  - CONVULSION [None]
